FAERS Safety Report 23651213 (Version 1)
Quarter: 2024Q1

REPORT INFORMATION
  Report Type: Spontaneous
  Country: BE (occurrence: BE)
  Receive Date: 20240320
  Receipt Date: 20240320
  Transmission Date: 20240409
  Serious: Yes (Hospitalization, Other)
  Sender: FDA-Public Use
  Company Number: BE-CLINIGEN-BE-CLGN-23-00007

PATIENT
  Age: 38 Year
  Sex: Female

DRUGS (13)
  1. FOSCARNET SODIUM [Suspect]
     Active Substance: FOSCARNET SODIUM
     Indication: HIV infection
     Dosage: 90 MILLIGRAM/KILOGRAM, BID
     Route: 042
  2. FOSCARNET SODIUM [Suspect]
     Active Substance: FOSCARNET SODIUM
     Dosage: UNK, BID
     Route: 042
     Dates: start: 2014
  3. FOSCARNET SODIUM [Suspect]
     Active Substance: FOSCARNET SODIUM
     Dosage: UNK, BID
     Route: 042
     Dates: start: 2016
  4. FOSCARNET SODIUM [Suspect]
     Active Substance: FOSCARNET SODIUM
     Dosage: UNK, BID
     Route: 042
     Dates: start: 2018
  5. FOSCARNET SODIUM [Suspect]
     Active Substance: FOSCARNET SODIUM
     Dosage: UNK, BID
     Route: 042
     Dates: start: 2019
  6. FOSCARNET SODIUM [Suspect]
     Active Substance: FOSCARNET SODIUM
     Dosage: UNK
  7. ENFUVIRTIDE [Suspect]
     Active Substance: ENFUVIRTIDE
     Indication: HIV infection
     Dosage: 90 MILLIGRAM, BID
     Route: 042
  8. ENFUVIRTIDE [Suspect]
     Active Substance: ENFUVIRTIDE
     Dosage: UNK
     Route: 058
  9. ENFUVIRTIDE [Suspect]
     Active Substance: ENFUVIRTIDE
     Dosage: UNK, BID
     Route: 042
     Dates: start: 2014
  10. ENFUVIRTIDE [Suspect]
     Active Substance: ENFUVIRTIDE
     Dosage: UNK, BID
     Route: 042
     Dates: start: 2016
  11. ENFUVIRTIDE [Suspect]
     Active Substance: ENFUVIRTIDE
     Dosage: UNK, BID
     Route: 042
     Dates: start: 2018
  12. ENFUVIRTIDE [Suspect]
     Active Substance: ENFUVIRTIDE
     Dosage: UNK, BID
     Route: 042
     Dates: start: 2019
  13. DOLUTEGRAVIR [Concomitant]
     Active Substance: DOLUTEGRAVIR
     Indication: HIV infection
     Dosage: HIGH DOSE

REACTIONS (3)
  - Myocarditis [Recovered/Resolved]
  - Acute kidney injury [Recovered/Resolved]
  - Drug ineffective for unapproved indication [Unknown]
